FAERS Safety Report 11885892 (Version 2)
Quarter: 2016Q1

REPORT INFORMATION
  Report Type: Report from Study
  Country: US (occurrence: US)
  Receive Date: 20160104
  Receipt Date: 20160219
  Transmission Date: 20160526
  Serious: Yes (Hospitalization)
  Sender: FDA-Public Use
  Company Number: US-ABBVIE-15K-163-1528569-00

PATIENT
  Age: 53 Year
  Sex: Female

DRUGS (1)
  1. HUMIRA [Suspect]
     Active Substance: ADALIMUMAB
     Indication: PSORIASIS
     Route: 058

REACTIONS (10)
  - Drug dose omission [Unknown]
  - Injection site papule [Unknown]
  - Injection site mass [Not Recovered/Not Resolved]
  - Rash pustular [Recovered/Resolved]
  - Injection site bruising [Not Recovered/Not Resolved]
  - Injury associated with device [Recovering/Resolving]
  - Pruritus [Recovered/Resolved]
  - Incorrect dose administered [Unknown]
  - Renal failure [Recovering/Resolving]
  - Wrong technique in product usage process [Recovering/Resolving]

NARRATIVE: CASE EVENT DATE: 20151227
